FAERS Safety Report 21509447 (Version 1)
Quarter: 2022Q4

REPORT INFORMATION
  Report Type: Report from Study
  Country: US (occurrence: US)
  Receive Date: 20221026
  Receipt Date: 20221026
  Transmission Date: 20230113
  Serious: No
  Sender: FDA-Public Use
  Company Number: US-MIRM-000541

PATIENT
  Age: 11 Year
  Sex: Male

DRUGS (1)
  1. LIVMARLI [Suspect]
     Active Substance: MARALIXIBAT CHLORIDE
     Indication: Product used for unknown indication
     Route: 048

REACTIONS (3)
  - Platelet count decreased [Unknown]
  - Pruritus [Recovering/Resolving]
  - Scratch [Recovering/Resolving]

NARRATIVE: CASE EVENT DATE: 20220601
